FAERS Safety Report 9478528 (Version 2)
Quarter: 2013Q3

REPORT INFORMATION
  Report Type: Spontaneous
  Country: US (occurrence: None)
  Receive Date: 20130822
  Receipt Date: 20130905
  Transmission Date: 20140515
  Serious: Yes (Disabling)
  Sender: FDA-Public Use
  Company Number: AUR-APL-2013-06879

PATIENT
  Sex: Female

DRUGS (1)
  1. LEVOFLOXACIN (LEVOFLOXACIN) [Suspect]
     Indication: BRONCHITIS

REACTIONS (12)
  - Abasia [None]
  - Tendon pain [None]
  - Arthropathy [None]
  - Fall [None]
  - Pain in extremity [None]
  - Arthralgia [None]
  - Arthralgia [None]
  - Mobility decreased [None]
  - Dizziness [None]
  - Fatigue [None]
  - Feeling abnormal [None]
  - Impaired driving ability [None]
